FAERS Safety Report 7765185-8 (Version None)
Quarter: 2011Q3

REPORT INFORMATION
  Report Type: 
  Country: None (occurrence: None)
  Receive Date: 20110921
  Receipt Date: 20110916
  Transmission Date: 20111222
  Serious: Yes (Hospitalization)
  Sender: FDA-Public Use
  Company Number: US-GLAXOSMITHKLINE-A0782975A

PATIENT
  Age: 52 Year
  Sex: Female
  Weight: 70.5 kg

DRUGS (8)
  1. ALTACE [Concomitant]
  2. AVANDIA [Suspect]
     Indication: DIABETES MELLITUS
     Dosage: 4MG PER DAY
     Route: 048
     Dates: start: 20030701, end: 20070725
  3. LOVASTATIN [Concomitant]
  4. METFORMIN HCL [Concomitant]
  5. LOVASTATIN [Concomitant]
  6. AVANDAMET [Suspect]
     Indication: DIABETES MELLITUS
     Route: 048
     Dates: start: 20040401, end: 20040401
  7. PRAVACHOL [Concomitant]
  8. TOPROL-XL [Concomitant]

REACTIONS (4)
  - MYOCARDIAL INFARCTION [None]
  - MYOCARDIAL ISCHAEMIA [None]
  - CARDIAC FAILURE CONGESTIVE [None]
  - CORONARY ARTERY DISEASE [None]
